FAERS Safety Report 8004606-2 (Version None)
Quarter: 2011Q4

REPORT INFORMATION
  Report Type: 
  Country: None (occurrence: None)
  Receive Date: 20111223
  Receipt Date: 20111212
  Transmission Date: 20120403
  Serious: Yes (Other)
  Sender: FDA-Public Use
  Company Number: US-RANBAXY-2011US-50672

PATIENT

DRUGS (2)
  1. FLUOXETINE [Suspect]
     Indication: ANXIETY
  2. FLUOXETINE [Suspect]
     Indication: DEPRESSION
     Dosage: 2 CAPSULES OF 40 MG, UNK
     Route: 048
     Dates: start: 20111001, end: 20111101

REACTIONS (3)
  - PRURITUS GENERALISED [None]
  - MEMORY IMPAIRMENT [None]
  - FEELING ABNORMAL [None]
